FAERS Safety Report 6678266-7 (Version None)
Quarter: 2010Q2

REPORT INFORMATION
  Report Type: 
  Country: None (occurrence: None)
  Receive Date: 20100408
  Receipt Date: 20100408
  Transmission Date: 20101027
  Serious: Yes (Other)
  Sender: FDA-Public Use
  Company Number: None

PATIENT
  Age: 24 Year
  Sex: Male
  Weight: 77.1115 kg

DRUGS (2)
  1. ADDERALL XR 25 MG SHIRE US INC. [Suspect]
     Indication: ATTENTION DEFICIT/HYPERACTIVITY DISORDER
     Dosage: 25 MG 1 DAILY PO
     Route: 048
  2. VYVANASE 50 MG [Suspect]

REACTIONS (2)
  - PALPITATIONS [None]
  - PRODUCT SUBSTITUTION ISSUE [None]
